FAERS Safety Report 15169905 (Version 3)
Quarter: 2018Q4

REPORT INFORMATION
  Report Type: Spontaneous
  Country: JP (occurrence: JP)
  Receive Date: 20180720
  Receipt Date: 20181210
  Transmission Date: 20190204
  Serious: No
  Sender: FDA-Public Use
  Company Number: JP-BIOVERATIV-2018BV000436

PATIENT
  Age: 1 Year

DRUGS (5)
  1. EMICIZUMAB. [Concomitant]
     Active Substance: EMICIZUMAB
     Route: 065
  2. ELOCTATE [Suspect]
     Active Substance: (1-743)-(1638-2332)-BLOOD-COAGULATION FACTOR VIII (SYNTHETIC HUMAN) FUSION PROTEIN WITH IMMUNOGLOBULIN G1 (SYNTHETIC HUMAN FC DOMAIN FRAGMENT), (1444-6^),(1447-9^)-BIS(DISULFIDE) WITH IMMUNOGLOBULIN G1 (SYNTHETIC HUMAN FC DOMAIN FRAGMENT)
     Indication: FACTOR VIII DEFICIENCY
     Dosage: ITI
     Route: 042
     Dates: start: 20170315
  3. ELOCTATE [Suspect]
     Active Substance: (1-743)-(1638-2332)-BLOOD-COAGULATION FACTOR VIII (SYNTHETIC HUMAN) FUSION PROTEIN WITH IMMUNOGLOBULIN G1 (SYNTHETIC HUMAN FC DOMAIN FRAGMENT), (1444-6^),(1447-9^)-BIS(DISULFIDE) WITH IMMUNOGLOBULIN G1 (SYNTHETIC HUMAN FC DOMAIN FRAGMENT)
     Dosage: ITI
     Route: 042
     Dates: start: 201805
  4. ELOCTATE [Suspect]
     Active Substance: (1-743)-(1638-2332)-BLOOD-COAGULATION FACTOR VIII (SYNTHETIC HUMAN) FUSION PROTEIN WITH IMMUNOGLOBULIN G1 (SYNTHETIC HUMAN FC DOMAIN FRAGMENT), (1444-6^),(1447-9^)-BIS(DISULFIDE) WITH IMMUNOGLOBULIN G1 (SYNTHETIC HUMAN FC DOMAIN FRAGMENT)
     Indication: IMMUNE TOLERANCE INDUCTION
     Dosage: ROUTINE TREATMENT
     Route: 042
     Dates: start: 201605
  5. ELOCTATE [Suspect]
     Active Substance: (1-743)-(1638-2332)-BLOOD-COAGULATION FACTOR VIII (SYNTHETIC HUMAN) FUSION PROTEIN WITH IMMUNOGLOBULIN G1 (SYNTHETIC HUMAN FC DOMAIN FRAGMENT), (1444-6^),(1447-9^)-BIS(DISULFIDE) WITH IMMUNOGLOBULIN G1 (SYNTHETIC HUMAN FC DOMAIN FRAGMENT)
     Dosage: ITI
     Route: 042
     Dates: start: 20170719

REACTIONS (5)
  - Off label use [Unknown]
  - Catheter site haemorrhage [Recovered/Resolved]
  - Lip haemorrhage [Recovered/Resolved]
  - Haemarthrosis [Recovered/Resolved]
  - Tongue haemorrhage [Recovered/Resolved]

NARRATIVE: CASE EVENT DATE: 20170315
